FAERS Safety Report 9153948 (Version 1)
Quarter: 2013Q1

REPORT INFORMATION
  Report Type: Spontaneous
  Country: US (occurrence: None)
  Receive Date: 20130207
  Receipt Date: 20130207
  Transmission Date: 20140127
  Serious: Yes (Other)
  Sender: FDA-Public Use
  Company Number: 2013MA000850

PATIENT
  Age: 80 Year
  Sex: Male

DRUGS (6)
  1. ISOSORBIDE MONONITRATE EXTENDED RELEASE [Suspect]
     Indication: PRODUCT USED FOR UNKNOWN INDICATION
     Route: 048
     Dates: start: 20111201, end: 20121209
  2. TAMSULOSIN HYDROCHLORIDE CAPSULES [Suspect]
     Route: 048
     Dates: start: 20111210, end: 20121209
  3. SOTALOL [Suspect]
     Route: 048
     Dates: start: 20111210, end: 20121209
  4. LANOXIN [Concomitant]
  5. ALLOPURINOL [Concomitant]
  6. METFORMIN [Concomitant]

REACTIONS (1)
  - Presyncope [None]
